FAERS Safety Report 7082169-6 (Version None)
Quarter: 2010Q4

REPORT INFORMATION
  Report Type: 
  Country: None (occurrence: None)
  Receive Date: 20101103
  Receipt Date: 20101028
  Transmission Date: 20110411
  Serious: Yes (Death)
  Sender: FDA-Public Use
  Company Number: JP-ABBOTT-10P-087-0675953-00

PATIENT
  Age: 80 Year
  Sex: Female
  Weight: 27 kg

DRUGS (6)
  1. KLARICID [Suspect]
     Indication: ATYPICAL MYCOBACTERIAL INFECTION
     Dates: start: 20090413, end: 20100504
  2. VALSARTAN [Concomitant]
     Indication: DISEASE COMPLICATION
     Route: 048
     Dates: end: 20100504
  3. AMLODIPINE BESYLATE [Concomitant]
     Indication: DISEASE COMPLICATION
     Dates: end: 20100504
  4. FAMOTIDINE [Concomitant]
     Indication: PROPHYLAXIS
     Route: 048
     Dates: end: 20100504
  5. AMBROXOL HYDROCHLORIDE [Concomitant]
     Indication: DISEASE COMPLICATION
     Route: 048
     Dates: end: 20100504
  6. POTASSIUM L-ASPARTATE [Concomitant]
     Indication: DISEASE COMPLICATION
     Route: 048
     Dates: end: 20100504

REACTIONS (7)
  - ASPIRATION [None]
  - GENERAL PHYSICAL HEALTH DETERIORATION [None]
  - MALAISE [None]
  - MALNUTRITION [None]
  - PNEUMONIA [None]
  - RESPIRATORY FAILURE [None]
  - SLEEP DISORDER [None]
